FAERS Safety Report 14165541 (Version 2)
Quarter: 2017Q4

REPORT INFORMATION
  Report Type: Spontaneous
  Country: FR (occurrence: FR)
  Receive Date: 20171107
  Receipt Date: 20171107
  Transmission Date: 20180321
  Serious: Yes (Other)
  Sender: FDA-Public Use
  Company Number: PHHY2017FR162986

PATIENT
  Age: 33 Year
  Sex: Male

DRUGS (2)
  1. ATROPINE SULFATE. [Suspect]
     Active Substance: ATROPINE SULFATE
     Indication: MEDICATION ERROR
     Dosage: 1 GTT, ONCE/SINGLE
     Route: 047
     Dates: start: 20171008, end: 20171008
  2. SODIUM CHLORIDE. [Concomitant]
     Active Substance: SODIUM CHLORIDE
     Indication: EYE DISORDER
     Route: 065

REACTIONS (3)
  - Mydriasis [Recovered/Resolved]
  - Wrong drug administered [Recovered/Resolved]
  - Medication error [Recovered/Resolved]

NARRATIVE: CASE EVENT DATE: 20171008
